FAERS Safety Report 4747596-8 (Version None)
Quarter: 2005Q3

REPORT INFORMATION
  Report Type: 
  Country: None (occurrence: None)
  Receive Date: 20050818
  Receipt Date: 20041130
  Transmission Date: 20060218
  Serious: No
  Sender: FDA-Public Use
  Company Number: US-BRISTOL-MYERS SQUIBB COMPANY-12779468

PATIENT
  Sex: Female

DRUGS (1)
  1. TEQUIN [Suspect]
     Indication: URINARY TRACT INFECTION
     Dosage: 400 MG FOR 3 DAYS THEN 400 MG FOR 7 DAYS.
     Route: 048
     Dates: start: 20040101, end: 20040101

REACTIONS (1)
  - DRUG INEFFECTIVE [None]
